FAERS Safety Report 15566572 (Version 2)
Quarter: 2018Q4

REPORT INFORMATION
  Report Type: Spontaneous
  Country: US (occurrence: US)
  Receive Date: 20181030
  Receipt Date: 20181212
  Transmission Date: 20190205
  Serious: No
  Sender: FDA-Public Use
  Company Number: US-GLAXOSMITHKLINE-US2018GSK189791

PATIENT
  Sex: Female
  Weight: 68.27 kg

DRUGS (1)
  1. VENTOLIN [Suspect]
     Active Substance: ALBUTEROL SULFATE
     Indication: ASTHMA
     Dosage: 2 PUFF(S), PRN UP TO SIX TIMES A DAY
     Route: 055
     Dates: start: 2007

REACTIONS (6)
  - Sinus headache [Unknown]
  - Hypersensitivity [Unknown]
  - Dyspnoea [Unknown]
  - Dust allergy [Unknown]
  - Mycotic allergy [Unknown]
  - Sneezing [Unknown]
